FAERS Safety Report 21653767 (Version 1)
Quarter: 2022Q4

REPORT INFORMATION
  Report Type: Other
  Country: KZ (occurrence: KZ)
  Receive Date: 20221129
  Receipt Date: 20221129
  Transmission Date: 20230113
  Serious: Yes (Hospitalization)
  Sender: FDA-Public Use
  Company Number: KZ-MACLEODS PHARMACEUTICALS LTD. KAZAKHSTAN-MAC2022038020

PATIENT

DRUGS (6)
  1. PYRAZINAMIDE [Suspect]
     Active Substance: PYRAZINAMIDE
     Indication: Pulmonary tuberculosis
     Dosage: UNK
     Route: 048
     Dates: start: 20220202, end: 20220225
  2. PYRAZINAMIDE [Suspect]
     Active Substance: PYRAZINAMIDE
     Dosage: UNK
     Route: 048
     Dates: start: 20220228, end: 20220325
  3. PYRAZINAMIDE [Suspect]
     Active Substance: PYRAZINAMIDE
     Dosage: UNK
     Route: 048
     Dates: start: 20220326
  4. Kombutol [Concomitant]
     Indication: Pulmonary tuberculosis
     Dosage: UNK (RK-LS-5 NO. 020274, CONCEPT PHARMACEUTICALS LIMITED; INDIA)
     Route: 048
     Dates: start: 20220202
  5. ISONIAZID [Concomitant]
     Active Substance: ISONIAZID
     Indication: Pulmonary tuberculosis
     Dosage: UNK (IRKUTSK JSC PHARMASINTEZ)
     Route: 048
     Dates: start: 20220202
  6. RIFAMPIN [Concomitant]
     Active Substance: RIFAMPIN
     Indication: Pulmonary tuberculosis
     Dosage: UNK (IRKUTSK JSC PHARMASINTEZ)
     Route: 048
     Dates: start: 20220202

REACTIONS (2)
  - Alanine aminotransferase increased [Recovering/Resolving]
  - Transaminases increased [Recovered/Resolved]

NARRATIVE: CASE EVENT DATE: 20220223
